FAERS Safety Report 5033146-8 (Version None)
Quarter: 2006Q2

REPORT INFORMATION
  Report Type: 
  Country: None (occurrence: None)
  Receive Date: 20060505
  Receipt Date: 20060213
  Transmission Date: 20061013
  Serious: Yes (Other)
  Sender: FDA-Public Use
  Company Number: PHEH2006US02100

PATIENT
  Age: 71 Year
  Sex: Male
  Weight: 90.7 kg

DRUGS (4)
  1. DIOVAN HCT [Suspect]
     Indication: HYPERTENSION
     Dosage: 160/12.5 MG
  2. DIOVAN [Suspect]
     Indication: HYPERTENSION
     Dosage: 160 MG, QD
  3. COREG [Concomitant]
  4. ZYLOPRIM [Concomitant]

REACTIONS (1)
  - BLOOD CREATININE INCREASED [None]
